FAERS Safety Report 6877877-3 (Version None)
Quarter: 2010Q3

REPORT INFORMATION
  Report Type: 
  Country: None (occurrence: None)
  Receive Date: 20100727
  Receipt Date: 20100719
  Transmission Date: 20110219
  Serious: Yes (Hospitalization)
  Sender: FDA-Public Use
  Company Number: US-SANOFI-AVENTIS-2010SA043197

PATIENT
  Age: 73 Year
  Sex: Female

DRUGS (2)
  1. SOLOSTAR [Suspect]
     Indication: TYPE 2 DIABETES MELLITUS
  2. LANTUS [Suspect]
     Indication: TYPE 2 DIABETES MELLITUS
     Dosage: DOSE:56 UNIT(S)
     Route: 058

REACTIONS (4)
  - ATRIAL FIBRILLATION [None]
  - INJECTION SITE HAEMATOMA [None]
  - OEDEMA PERIPHERAL [None]
  - WEIGHT INCREASED [None]
